FAERS Safety Report 5334520-2 (Version None)
Quarter: 2007Q2

REPORT INFORMATION
  Report Type: 
  Country: None (occurrence: None)
  Receive Date: 20070525
  Receipt Date: 20070518
  Transmission Date: 20071010
  Serious: Yes (Other)
  Sender: FDA-Public Use
  Company Number: US-JNJFOC-20070504767

PATIENT
  Age: 56 Year
  Sex: Female

DRUGS (4)
  1. REMICADE [Suspect]
     Route: 042
  2. REMICADE [Suspect]
     Route: 042
  3. REMICADE [Suspect]
     Indication: PUSTULAR PSORIASIS
     Route: 042
  4. CLOBETASOL PROPIONATE [Concomitant]
     Route: 061

REACTIONS (4)
  - CHILLS [None]
  - HAEMOPTYSIS [None]
  - HYPERHIDROSIS [None]
  - PYREXIA [None]
